FAERS Safety Report 10076311 (Version 3)
Quarter: 2014Q2

REPORT INFORMATION
  Report Type: Spontaneous
  Country: US (occurrence: US)
  Receive Date: 20140414
  Receipt Date: 20140430
  Transmission Date: 20141212
  Serious: Yes (Death, Hospitalization)
  Sender: FDA-Public Use
  Company Number: US-BAXTER-2014BAX017795

PATIENT
  Sex: Male

DRUGS (1)
  1. DIANEAL LOW CALCIUM [Suspect]
     Indication: PERITONEAL DIALYSIS
     Route: 033
     Dates: start: 201312, end: 20140410

REACTIONS (5)
  - Therapy cessation [Fatal]
  - Brain death [Fatal]
  - Fungal peritonitis [Not Recovered/Not Resolved]
  - Peritonitis bacterial [Recovering/Resolving]
  - Peritoneal dialysis complication [Unknown]
